FAERS Safety Report 7899335 (Version 4)
Quarter: 2014Q4

REPORT INFORMATION
  Report Type: Spontaneous
  Country: US (occurrence: US)
  Receive Date: 20110414
  Receipt Date: 20141024
  Transmission Date: 20150529
  Serious: Yes (Hospitalization)
  Sender: FDA-Public Use
  Company Number: US-ASTRAZENECA-2011SE19778

PATIENT
  Age: 82 Year
  Sex: Female

DRUGS (3)
  1. CRESTOR [Suspect]
     Active Substance: ROSUVASTATIN CALCIUM
     Route: 048
  2. NEXIUM [Suspect]
     Active Substance: ESOMEPRAZOLE MAGNESIUM
     Route: 048
  3. PULMICORT RESPULES [Suspect]
     Active Substance: BUDESONIDE
     Dosage: BID
     Route: 055

REACTIONS (12)
  - Head injury [Unknown]
  - Hypovitaminosis [Unknown]
  - Malaise [Not Recovered/Not Resolved]
  - Renal impairment [Unknown]
  - Cardiac disorder [Unknown]
  - Intentional product misuse [Unknown]
  - Off label use [Not Recovered/Not Resolved]
  - Swelling [Unknown]
  - Fall [Unknown]
  - Urinary retention [Unknown]
  - Cardiac failure congestive [Unknown]
  - Blood disorder [Unknown]

NARRATIVE: CASE EVENT DATE: 2014
